FAERS Safety Report 5737078-9 (Version None)
Quarter: 2008Q2

REPORT INFORMATION
  Report Type: 
  Country: None (occurrence: None)
  Receive Date: 20080513
  Receipt Date: 20080513
  Transmission Date: 20081010
  Serious: No
  Sender: FDA-Public Use
  Company Number: None

PATIENT
  Age: 59 Year
  Sex: Male
  Weight: 91.6266 kg

DRUGS (1)
  1. DIGITEK 0.25 MG MYLAN BERT [Suspect]
     Indication: CARDIAC DISORDER
     Dosage: 1 TAB DAILY PO
     Route: 048
     Dates: start: 20010201, end: 20080512

REACTIONS (9)
  - CONCUSSION [None]
  - DIZZINESS [None]
  - FACE INJURY [None]
  - FACIAL BONES FRACTURE [None]
  - FALL [None]
  - JOINT DISLOCATION [None]
  - JOINT INJURY [None]
  - SKIN LACERATION [None]
  - VERTIGO [None]
